FAERS Safety Report 24342981 (Version 1)
Quarter: 2024Q3

REPORT INFORMATION
  Report Type: Spontaneous
  Country: US (occurrence: None)
  Receive Date: 20240919
  Receipt Date: 20240919
  Transmission Date: 20241017
  Serious: Yes (Other)
  Sender: Public
  Company Number: None

PATIENT
  Age: 69 Year
  Sex: Male

DRUGS (9)
  1. LENALIDOMIDE [Suspect]
     Active Substance: LENALIDOMIDE
     Indication: Myelodysplastic syndrome
     Dosage: 10MG DAILY X ORAL
     Route: 048
     Dates: start: 20240722, end: 20240913
  2. LEVOTHYROXINE [Concomitant]
  3. SIMVASTATIN [Concomitant]
  4. MULTIVITAMIN [Concomitant]
  5. EPOGEN INJECTIONS [Concomitant]
  6. FOLIC ACID [Concomitant]
  7. FERROUS SULFATE [Concomitant]
  8. CHOLECALCIFEROL [Concomitant]
  9. OMEPRAZOLE [Concomitant]

REACTIONS (5)
  - Dizziness [None]
  - Dizziness [None]
  - Dyspnoea [None]
  - Peripheral swelling [None]
  - Rash [None]

NARRATIVE: CASE EVENT DATE: 20240918
